FAERS Safety Report 23720614 (Version 2)
Quarter: 2024Q2

REPORT INFORMATION
  Report Type: Spontaneous
  Country: US (occurrence: US)
  Receive Date: 20240408
  Receipt Date: 20240517
  Transmission Date: 20240716
  Serious: Yes (Hospitalization)
  Sender: FDA-Public Use
  Company Number: US-PFIZER INC-PV202400044873

PATIENT
  Age: 81 Year
  Sex: Female
  Weight: 98.413 kg

DRUGS (2)
  1. METOPROLOL TARTRATE [Suspect]
     Active Substance: METOPROLOL TARTRATE
     Indication: Cardiac disorder
     Dosage: METOPROLOL 25MG 2 X DAILY
     Dates: start: 202203
  2. AMIODARONE [Concomitant]
     Active Substance: AMIODARONE
     Indication: Cardiac disorder
     Dosage: UNK

REACTIONS (3)
  - Cardiac failure congestive [Unknown]
  - Fatigue [Not Recovered/Not Resolved]
  - Cough [Not Recovered/Not Resolved]
